FAERS Safety Report 19504550 (Version 3)
Quarter: 2021Q4

REPORT INFORMATION
  Report Type: Spontaneous
  Country: US (occurrence: US)
  Receive Date: 20210707
  Receipt Date: 20211005
  Transmission Date: 20220303
  Serious: Yes (Other)
  Sender: FDA-Public Use
  Company Number: US-ROCHE-2865135

PATIENT
  Sex: Male

DRUGS (6)
  1. ACTEMRA [Suspect]
     Active Substance: TOCILIZUMAB
     Indication: Headache
     Dosage: 162MG/0.9ML
     Route: 058
     Dates: start: 20210622
  2. ACTEMRA [Suspect]
     Active Substance: TOCILIZUMAB
  3. LISINOPRIL [Concomitant]
     Active Substance: LISINOPRIL
  4. AMLODIPINE [Concomitant]
     Active Substance: AMLODIPINE BESYLATE
     Dosage: 5-10 MG
  5. ATORVASTATIN [Concomitant]
     Active Substance: ATORVASTATIN
  6. ACETAMINOPHEN\HYDROCODONE [Concomitant]
     Active Substance: ACETAMINOPHEN\HYDROCODONE

REACTIONS (5)
  - Eye injury [Unknown]
  - Headache [Unknown]
  - Weight increased [Unknown]
  - Insomnia [Unknown]
  - Asthenia [Unknown]
